FAERS Safety Report 11155303 (Version 12)
Quarter: 2019Q1

REPORT INFORMATION
  Report Type: Spontaneous
  Country: US (occurrence: US)
  Receive Date: 20150602
  Receipt Date: 20190308
  Transmission Date: 20190417
  Serious: Yes (Other)
  Sender: FDA-Public Use
  Company Number: US-PFIZER INC-2015180352

PATIENT
  Age: 82 Year
  Sex: Female

DRUGS (21)
  1. LYRICA [Suspect]
     Active Substance: PREGABALIN
     Dosage: 4 CAPSULES, 2 AM AND 2 PM
  2. DIAZEPAM. [Concomitant]
     Active Substance: DIAZEPAM
     Dosage: UNK
  3. SPIRONOLACTONE. [Concomitant]
     Active Substance: SPIRONOLACTONE
     Dosage: UNK
     Dates: start: 1978
  4. LYRICA [Suspect]
     Active Substance: PREGABALIN
     Indication: HYPOAESTHESIA
     Dosage: 100 MG, DAILY (TWO 50 MG CAPSULES A DAY)
  5. LYRICA [Suspect]
     Active Substance: PREGABALIN
     Dosage: 300 MG, DAILY (FOUR TIMES A DAY AS DIRECTED, TAKE 2 IN AM, 2 AT 11, 1 AT 4 PM AND 1 AT BEDTIME)
     Route: 048
  6. OMEPRAZOLE. [Concomitant]
     Active Substance: OMEPRAZOLE
     Dosage: UNK
     Dates: start: 2001
  7. LYRICA [Suspect]
     Active Substance: PREGABALIN
     Dosage: UNK, 3X/DAY (EACH DAY, ONE FIRST IN THE MORNING, ONE AROUND IN THE MIDDLE OF THE DAY AND ONE ABOUT)
  8. LYRICA [Suspect]
     Active Substance: PREGABALIN
     Dosage: 50 MG, UNK (AS DIRECTED UP TO 6 PER DAY 30 DAY(S))
     Route: 048
  9. LYRICA [Suspect]
     Active Substance: PREGABALIN
     Dosage: 50 MG, 1 IN AM, 2 AT 11 AM, 1 AT 4 PM AND 1 AT BEDTIME
     Route: 048
  10. FUROSEMIDE. [Concomitant]
     Active Substance: FUROSEMIDE
     Dosage: UNK
  11. LYRICA [Suspect]
     Active Substance: PREGABALIN
     Indication: CONGENITAL NEUROPATHY
     Dosage: 50 MG, UNK
  12. LYRICA [Suspect]
     Active Substance: PREGABALIN
     Dosage: 50 MG, 3X/DAY
  13. LYRICA [Suspect]
     Active Substance: PREGABALIN
     Dosage: 50 MG, 2 IN AM, 1 AT 11 AM, 1 AT 4 PM AND 1 AT BEDTIME
     Route: 048
  14. TRAMADOL. [Concomitant]
     Active Substance: TRAMADOL
     Dosage: UNK
  15. LYRICA [Suspect]
     Active Substance: PREGABALIN
     Dosage: 100 MG, 1X/DAY
  16. LYRICA [Suspect]
     Active Substance: PREGABALIN
     Dosage: 50 MG, 2 IN AM, 2 AT 11 AM, 1 AT 4 PM AND 1 AT BEDTIME
     Route: 048
  17. OMEPRAZOLE. [Concomitant]
     Active Substance: OMEPRAZOLE
     Dosage: UNK
     Dates: start: 2008
  18. LYRICA [Suspect]
     Active Substance: PREGABALIN
     Indication: NEUROPATHY PERIPHERAL
     Dosage: 50 MG, 1X/DAY (ONE CAPSULE)
     Route: 048
  19. AMLODIPINE [Concomitant]
     Active Substance: AMLODIPINE BESYLATE
     Dosage: UNK
  20. METOPROLOL. [Concomitant]
     Active Substance: METOPROLOL
     Dosage: UNK
  21. SPIRONOLACTONE. [Concomitant]
     Active Substance: SPIRONOLACTONE
     Dosage: UNK
     Dates: start: 2000

REACTIONS (5)
  - Off label use [Not Recovered/Not Resolved]
  - Product use in unapproved indication [Not Recovered/Not Resolved]
  - Depressed mood [Unknown]
  - Neuropathy peripheral [Not Recovered/Not Resolved]
  - Condition aggravated [Not Recovered/Not Resolved]
